FAERS Safety Report 19902011 (Version 1)
Quarter: 2021Q3

REPORT INFORMATION
  Report Type: Report from Study
  Country: GB (occurrence: GB)
  Receive Date: 20210930
  Receipt Date: 20210930
  Transmission Date: 20211014
  Serious: Yes (Other)
  Sender: FDA-Public Use
  Company Number: GB-TAKEDA-2021TUS032573

PATIENT
  Age: 48 Year
  Sex: Male

DRUGS (1)
  1. IXAZOMIB [Suspect]
     Active Substance: IXAZOMIB
     Indication: PLASMA CELL MYELOMA
     Dosage: UNK
     Route: 048
     Dates: start: 20210513, end: 20210923

REACTIONS (10)
  - Plasma cell myeloma [Unknown]
  - Paraproteinaemia [Unknown]
  - Insomnia [Unknown]
  - Urine output decreased [Recovering/Resolving]
  - Dyspnoea [Unknown]
  - Decreased appetite [Unknown]
  - Back pain [Recovered/Resolved]
  - Joint swelling [Recovering/Resolving]
  - Fatigue [Unknown]
  - Vision blurred [Unknown]

NARRATIVE: CASE EVENT DATE: 20210513
